FAERS Safety Report 6822599-8 (Version None)
Quarter: 2010Q3

REPORT INFORMATION
  Report Type: 
  Country: None (occurrence: None)
  Receive Date: 20100708
  Receipt Date: 20100628
  Transmission Date: 20110219
  Serious: Yes (Death, Hospitalization, Other)
  Sender: FDA-Public Use
  Company Number: US-ELI_LILLY_AND_COMPANY-US201006007374

PATIENT
  Sex: Male

DRUGS (3)
  1. PROZAC [Suspect]
     Indication: DEPRESSION
     Dosage: 10 MG, 2/D
  2. PROZAC [Suspect]
     Dosage: 1 D/F, UNK
  3. PLAVIX [Concomitant]

REACTIONS (8)
  - CEREBRAL HAEMORRHAGE [None]
  - CEREBROVASCULAR ACCIDENT [None]
  - COMA [None]
  - CRYING [None]
  - MALAISE [None]
  - MUSCLE CONTRACTURE [None]
  - PAIN [None]
  - VIITH NERVE PARALYSIS [None]
